FAERS Safety Report 4895463-1 (Version None)
Quarter: 2006Q1

REPORT INFORMATION
  Report Type: 
  Country: None (occurrence: None)
  Receive Date: 20060125
  Receipt Date: 20060120
  Transmission Date: 20060701
  Serious: Yes (Other)
  Sender: FDA-Public Use
  Company Number: HQWYE444420JAN06

PATIENT
  Age: 37 Year
  Sex: Female

DRUGS (3)
  1. INDERAL LA [Suspect]
     Indication: HYPERTROPHIC CARDIOMYOPATHY
     Dosage: 160 MG/ ORAL
     Route: 048
     Dates: end: 20050901
  2. INDERAL LA [Suspect]
     Indication: HYPERTROPHIC CARDIOMYOPATHY
     Dosage: 160 MG/ ORAL
     Route: 048
     Dates: start: 20050901, end: 20051201
  3. INDERAL LA [Suspect]
     Indication: HYPERTROPHIC CARDIOMYOPATHY
     Dosage: 160 MG/ ORAL
     Route: 048
     Dates: start: 20051201

REACTIONS (3)
  - DRUG INEFFECTIVE [None]
  - EXTRASYSTOLES [None]
  - HEART RATE INCREASED [None]
